FAERS Safety Report 10019069 (Version 1)
Quarter: 2014Q1

REPORT INFORMATION
  Report Type: Spontaneous
  Country: US (occurrence: None)
  Receive Date: 20140314
  Receipt Date: 20140314
  Transmission Date: 20141002
  Serious: Yes (Hospitalization)
  Sender: FDA-Public Use
  Company Number: None

PATIENT
  Age: 65 Year
  Sex: Male
  Weight: 115.3 kg

DRUGS (1)
  1. DULOXETINE [Suspect]
     Indication: DEPRESSION
     Dosage: 60 MG AM
     Route: 048
     Dates: start: 20100813, end: 20131121

REACTIONS (2)
  - Orthostatic hypotension [None]
  - Fall [None]
